FAERS Safety Report 26082941 (Version 1)
Quarter: 2025Q4

REPORT INFORMATION
  Report Type: Spontaneous
  Country: US (occurrence: US)
  Receive Date: 20251124
  Receipt Date: 20251124
  Transmission Date: 20260117
  Serious: Yes (Life-Threatening, Hospitalization, Other)
  Sender: CHEPLAPHARM
  Company Number: None

PATIENT
  Age: 30 Year
  Sex: Female

DRUGS (8)
  1. QUETIAPINE [Suspect]
     Active Substance: QUETIAPINE
     Indication: Bipolar disorder
     Dosage: PILL
     Route: 048
  2. LORAZEPAM [Suspect]
     Active Substance: LORAZEPAM
     Indication: Bipolar disorder
     Route: 048
  3. ACETAMINOPHEN [Concomitant]
     Active Substance: ACETAMINOPHEN
  4. ASPIRIN [Concomitant]
     Active Substance: ASPIRIN
  5. CARBAMAZEPINE [Concomitant]
     Active Substance: CARBAMAZEPINE
  6. LAMOTRIGINE [Concomitant]
     Active Substance: LAMOTRIGINE
  7. CAFFEINE [Concomitant]
     Active Substance: CAFFEINE
  8. LITHIUM [Concomitant]
     Active Substance: LITHIUM

REACTIONS (14)
  - Status epilepticus [Recovered/Resolved]
  - Electrocardiogram QRS complex prolonged [Unknown]
  - Toxicity to various agents [Recovering/Resolving]
  - Electrocardiogram QT prolonged [Unknown]
  - Oxygen saturation decreased [Recovering/Resolving]
  - Hyperthermia [Recovering/Resolving]
  - Overdose [Recovering/Resolving]
  - Nystagmus [Unknown]
  - Clonus [Unknown]
  - Myoclonus [Unknown]
  - Mental status changes [Unknown]
  - Sinus tachycardia [Unknown]
  - Somnolence [Unknown]
  - Altered state of consciousness [Unknown]
